FAERS Safety Report 9375999 (Version 1)
Quarter: 2013Q2

REPORT INFORMATION
  Report Type: Spontaneous
  Country: US (occurrence: US)
  Receive Date: 20130629
  Receipt Date: 20130629
  Transmission Date: 20140414
  Serious: No
  Sender: FDA-Public Use
  Company Number: US-B.I. PHARMACEUTICALS,INC./RIDGEFIELD-2013-BI-18293BP

PATIENT
  Sex: Female

DRUGS (8)
  1. SPIRIVA [Suspect]
     Indication: BRONCHITIS CHRONIC
     Route: 055
     Dates: start: 201304
  2. TEMAZEPAM [Concomitant]
     Indication: MENTAL DISORDER
     Dosage: 30 MG
     Route: 048
  3. EFFEXOR XR [Concomitant]
     Indication: MENTAL DISORDER
     Dosage: 187.5 MG
     Route: 048
  4. TRILEPTAL [Concomitant]
     Indication: MENTAL DISORDER
     Route: 048
  5. ATIVAN [Concomitant]
     Indication: MENTAL DISORDER
     Route: 048
  6. XANAX [Concomitant]
     Indication: MENTAL DISORDER
     Route: 048
  7. LAMICTAL [Concomitant]
     Indication: MENTAL DISORDER
     Dosage: 75 MG
     Route: 048
  8. OXYGEN [Concomitant]
     Dates: start: 201209, end: 201209

REACTIONS (1)
  - Constipation [Not Recovered/Not Resolved]
